FAERS Safety Report 25541285 (Version 2)
Quarter: 2025Q3

REPORT INFORMATION
  Report Type: Spontaneous
  Country: US (occurrence: US)
  Receive Date: 20250711
  Receipt Date: 20250714
  Transmission Date: 20251020
  Serious: Yes (Hospitalization)
  Sender: SANOFI AVENTIS
  Company Number: US-SA-2025SA194086

PATIENT
  Sex: Female

DRUGS (4)
  1. DUPIXENT [Suspect]
     Active Substance: DUPILUMAB
     Indication: Dermatitis atopic
     Route: 058
  2. DUPIXENT [Suspect]
     Active Substance: DUPILUMAB
     Dosage: 300 MG, QOW
     Route: 058
  3. STIVARGA [Interacting]
     Active Substance: REGORAFENIB MONOHYDRATE
  4. YERVOY [Interacting]
     Active Substance: IPILIMUMAB

REACTIONS (2)
  - Drug interaction [Unknown]
  - Intentional product misuse [Unknown]
